FAERS Safety Report 12842461 (Version 2)
Quarter: 2016Q4

REPORT INFORMATION
  Report Type: Spontaneous
  Country: US (occurrence: US)
  Receive Date: 20161013
  Receipt Date: 20161018
  Transmission Date: 20170207
  Serious: Yes (Other)
  Sender: FDA-Public Use
  Company Number: US-AMGEN-USASP2016126371

PATIENT

DRUGS (57)
  1. TAXOTERE [Concomitant]
     Active Substance: DOCETAXEL
     Indication: INVASIVE DUCTAL BREAST CARCINOMA
  2. PARAPLATIN [Concomitant]
     Active Substance: CARBOPLATIN
     Indication: HER-2 POSITIVE BREAST CANCER
  3. APO-TAMOX [Concomitant]
     Active Substance: TAMOXIFEN
     Indication: NEOPLASM MALIGNANT
     Dosage: UNK
     Dates: start: 20081001
  4. APO-TAMOX [Concomitant]
     Active Substance: TAMOXIFEN
     Indication: PROGESTERONE RECEPTOR ASSAY NEGATIVE
  5. PARAPLATIN [Concomitant]
     Active Substance: CARBOPLATIN
     Indication: NEOPLASM MALIGNANT
     Dosage: UNK
     Dates: start: 20160825
  6. HERCEPTIN [Concomitant]
     Active Substance: TRASTUZUMAB
     Indication: NEOPLASM MALIGNANT
     Dosage: UNK
     Dates: start: 20160825
  7. HERCEPTIN [Concomitant]
     Active Substance: TRASTUZUMAB
     Indication: OESTROGEN RECEPTOR ASSAY POSITIVE
  8. HERCEPTIN [Concomitant]
     Active Substance: TRASTUZUMAB
     Indication: PROGESTERONE RECEPTOR ASSAY NEGATIVE
  9. HERCEPTIN [Concomitant]
     Active Substance: TRASTUZUMAB
     Indication: HER-2 POSITIVE BREAST CANCER
  10. PERJETA [Concomitant]
     Active Substance: PERTUZUMAB
     Indication: OESTROGEN RECEPTOR ASSAY POSITIVE
  11. NOLVADEX [Concomitant]
     Active Substance: TAMOXIFEN CITRATE
     Indication: PROGESTERONE RECEPTOR ASSAY NEGATIVE
  12. APO-TAMOX [Concomitant]
     Active Substance: TAMOXIFEN
     Indication: HUMAN EPIDERMAL GROWTH FACTOR RECEPTOR NEGATIVE
  13. TAMONE [Concomitant]
     Indication: PROGESTERONE RECEPTOR ASSAY NEGATIVE
  14. TAXOTERE [Concomitant]
     Active Substance: DOCETAXEL
     Indication: NEOPLASM MALIGNANT
     Dosage: UNK
     Dates: start: 20160825
  15. TAXOTERE [Concomitant]
     Active Substance: DOCETAXEL
     Indication: INTRADUCTAL PROLIFERATIVE BREAST LESION
  16. PARAPLATIN [Concomitant]
     Active Substance: CARBOPLATIN
     Indication: INVASIVE DUCTAL BREAST CARCINOMA
  17. PERJETA [Concomitant]
     Active Substance: PERTUZUMAB
     Indication: PROGESTERONE RECEPTOR ASSAY NEGATIVE
  18. NOLVADEX [Concomitant]
     Active Substance: TAMOXIFEN CITRATE
     Indication: HUMAN EPIDERMAL GROWTH FACTOR RECEPTOR NEGATIVE
  19. APO-TAMOX [Concomitant]
     Active Substance: TAMOXIFEN
     Indication: INVASIVE DUCTAL BREAST CARCINOMA
  20. TAMOFEN [Concomitant]
     Active Substance: TAMOXIFEN CITRATE
     Indication: PROGESTERONE RECEPTOR ASSAY NEGATIVE
  21. TAMONE [Concomitant]
     Indication: OESTROGEN RECEPTOR ASSAY POSITIVE
  22. TAXOTERE [Concomitant]
     Active Substance: DOCETAXEL
     Indication: HUMAN EPIDERMAL GROWTH FACTOR RECEPTOR NEGATIVE
  23. TAXOTERE [Concomitant]
     Active Substance: DOCETAXEL
     Indication: HER-2 POSITIVE BREAST CANCER
  24. HERCEPTIN [Concomitant]
     Active Substance: TRASTUZUMAB
     Indication: INVASIVE DUCTAL BREAST CARCINOMA
  25. PERJETA [Concomitant]
     Active Substance: PERTUZUMAB
     Indication: HER-2 POSITIVE BREAST CANCER
  26. NOLVADEX [Concomitant]
     Active Substance: TAMOXIFEN CITRATE
     Indication: NEOPLASM MALIGNANT
     Dosage: UNK
     Dates: start: 20081001
  27. NOLVADEX [Concomitant]
     Active Substance: TAMOXIFEN CITRATE
     Indication: OESTROGEN RECEPTOR ASSAY POSITIVE
  28. TAMOFEN [Concomitant]
     Active Substance: TAMOXIFEN CITRATE
     Indication: NEOPLASM MALIGNANT
     Dosage: UNK
     Dates: start: 20081001
  29. TAXOTERE [Concomitant]
     Active Substance: DOCETAXEL
     Indication: PROGESTERONE RECEPTOR ASSAY NEGATIVE
  30. PARAPLATIN [Concomitant]
     Active Substance: CARBOPLATIN
     Indication: PROGESTERONE RECEPTOR ASSAY NEGATIVE
  31. TAMOFEN [Concomitant]
     Active Substance: TAMOXIFEN CITRATE
     Indication: HER-2 POSITIVE BREAST CANCER
  32. PARAPLATIN [Concomitant]
     Active Substance: CARBOPLATIN
     Indication: INTRADUCTAL PROLIFERATIVE BREAST LESION
  33. HERCEPTIN [Concomitant]
     Active Substance: TRASTUZUMAB
     Indication: INTRADUCTAL PROLIFERATIVE BREAST LESION
  34. PERJETA [Concomitant]
     Active Substance: PERTUZUMAB
     Indication: HUMAN EPIDERMAL GROWTH FACTOR RECEPTOR NEGATIVE
  35. APO-TAMOX [Concomitant]
     Active Substance: TAMOXIFEN
     Indication: INTRADUCTAL PROLIFERATIVE BREAST LESION
  36. APO-TAMOX [Concomitant]
     Active Substance: TAMOXIFEN
     Indication: OESTROGEN RECEPTOR ASSAY POSITIVE
  37. TAMOFEN [Concomitant]
     Active Substance: TAMOXIFEN CITRATE
     Indication: OESTROGEN RECEPTOR ASSAY POSITIVE
  38. NEULASTA [Suspect]
     Active Substance: PEGFILGRASTIM
     Indication: PRODUCT USED FOR UNKNOWN INDICATION
     Dosage: UNK
     Route: 065
     Dates: start: 201608
  39. TAXOTERE [Concomitant]
     Active Substance: DOCETAXEL
     Indication: OESTROGEN RECEPTOR ASSAY POSITIVE
  40. PARAPLATIN [Concomitant]
     Active Substance: CARBOPLATIN
     Indication: OESTROGEN RECEPTOR ASSAY POSITIVE
  41. HERCEPTIN [Concomitant]
     Active Substance: TRASTUZUMAB
     Indication: HUMAN EPIDERMAL GROWTH FACTOR RECEPTOR NEGATIVE
  42. PERJETA [Concomitant]
     Active Substance: PERTUZUMAB
     Indication: NEOPLASM MALIGNANT
     Dosage: UNK
     Dates: start: 20160825
  43. NOLVADEX [Concomitant]
     Active Substance: TAMOXIFEN CITRATE
     Indication: INTRADUCTAL PROLIFERATIVE BREAST LESION
  44. NOLVADEX [Concomitant]
     Active Substance: TAMOXIFEN CITRATE
     Indication: HER-2 POSITIVE BREAST CANCER
  45. APO-TAMOX [Concomitant]
     Active Substance: TAMOXIFEN
     Indication: HER-2 POSITIVE BREAST CANCER
  46. TAMOFEN [Concomitant]
     Active Substance: TAMOXIFEN CITRATE
     Indication: INVASIVE DUCTAL BREAST CARCINOMA
  47. TAMOFEN [Concomitant]
     Active Substance: TAMOXIFEN CITRATE
     Indication: HUMAN EPIDERMAL GROWTH FACTOR RECEPTOR NEGATIVE
  48. TAMONE [Concomitant]
     Indication: NEOPLASM MALIGNANT
     Dosage: UNK
     Dates: start: 20081001
  49. TAMONE [Concomitant]
     Indication: INTRADUCTAL PROLIFERATIVE BREAST LESION
  50. TAMONE [Concomitant]
     Indication: HER-2 POSITIVE BREAST CANCER
  51. PARAPLATIN [Concomitant]
     Active Substance: CARBOPLATIN
     Indication: HUMAN EPIDERMAL GROWTH FACTOR RECEPTOR NEGATIVE
  52. PERJETA [Concomitant]
     Active Substance: PERTUZUMAB
     Indication: INTRADUCTAL PROLIFERATIVE BREAST LESION
  53. PERJETA [Concomitant]
     Active Substance: PERTUZUMAB
     Indication: INVASIVE DUCTAL BREAST CARCINOMA
  54. NOLVADEX [Concomitant]
     Active Substance: TAMOXIFEN CITRATE
     Indication: INVASIVE DUCTAL BREAST CARCINOMA
  55. TAMOFEN [Concomitant]
     Active Substance: TAMOXIFEN CITRATE
     Indication: INTRADUCTAL PROLIFERATIVE BREAST LESION
  56. TAMONE [Concomitant]
     Indication: INVASIVE DUCTAL BREAST CARCINOMA
  57. TAMONE [Concomitant]
     Indication: HUMAN EPIDERMAL GROWTH FACTOR RECEPTOR NEGATIVE

REACTIONS (23)
  - Fatigue [Unknown]
  - Abdominal distension [Not Recovered/Not Resolved]
  - Feeling abnormal [Recovering/Resolving]
  - Contusion [Unknown]
  - Adverse event [Unknown]
  - Central venous catheterisation [Unknown]
  - Rash macular [Unknown]
  - Malaise [Unknown]
  - Tremor [Unknown]
  - Hypersomnia [Unknown]
  - Vomiting [Unknown]
  - Dehydration [Unknown]
  - Dry skin [Unknown]
  - Aphonia [Unknown]
  - Decreased appetite [Unknown]
  - Nausea [Unknown]
  - Weight decreased [Unknown]
  - Flatulence [Not Recovered/Not Resolved]
  - Pain [Unknown]
  - Dysgeusia [Recovering/Resolving]
  - Epistaxis [Unknown]
  - Hair disorder [Not Recovered/Not Resolved]
  - Flushing [Unknown]

NARRATIVE: CASE EVENT DATE: 2016
